FAERS Safety Report 16025769 (Version 1)
Quarter: 2019Q1

REPORT INFORMATION
  Report Type: Spontaneous
  Country: US (occurrence: US)
  Receive Date: 20190302
  Receipt Date: 20190302
  Transmission Date: 20190418
  Serious: Yes (Other)
  Sender: FDA-Public Use
  Company Number: US-ACCORD-109551

PATIENT
  Age: 56 Year
  Sex: Female

DRUGS (3)
  1. BELIMUMAB [Concomitant]
     Active Substance: BELIMUMAB
     Indication: IMMUNOSUPPRESSANT DRUG THERAPY
     Dosage: 120 MG/1.5 ML, SYSTEMIC
  2. ZOLEDRONIC ACID [Suspect]
     Active Substance: ZOLEDRONIC ACID
     Indication: OSTEOPOROSIS
  3. CICLOSPORIN [Concomitant]
     Active Substance: CYCLOSPORINE
     Indication: IMMUNOSUPPRESSANT DRUG THERAPY
     Dosage: 1 MG/KG, SYSTEMIC

REACTIONS (2)
  - Parophthalmia [Recovered/Resolved]
  - Vitreous detachment [Recovered/Resolved]
